FAERS Safety Report 24555800 (Version 3)
Quarter: 2024Q4

REPORT INFORMATION
  Report Type: Spontaneous
  Country: CN (occurrence: CN)
  Receive Date: 20241028
  Receipt Date: 20241104
  Transmission Date: 20250114
  Serious: Yes (Other)
  Sender: NOVARTIS
  Company Number: CN-002147023-NVSC2024CN207515

PATIENT
  Age: 85 Year
  Sex: Female
  Weight: 43 kg

DRUGS (7)
  1. SACUBITRIL\VALSARTAN [Suspect]
     Active Substance: SACUBITRIL\VALSARTAN
     Indication: Hypertension
     Dosage: 0.50 DOSAGE FORM, QD (0.50 TABLET)
     Route: 048
     Dates: start: 20241013, end: 20241016
  2. SACUBITRIL\VALSARTAN [Suspect]
     Active Substance: SACUBITRIL\VALSARTAN
     Indication: Cardiac failure
     Dosage: 0.5 DOSAGE FORM, BID (0.50 TABLET)
     Route: 048
     Dates: start: 20241016, end: 20241018
  3. FUROSEMIDE [Concomitant]
     Active Substance: FUROSEMIDE
     Indication: Diuretic therapy
     Dosage: 1 DOSAGE FORM, QD (1 TABLET)
     Route: 048
     Dates: start: 20241012, end: 20241016
  4. FUROSEMIDE [Concomitant]
     Active Substance: FUROSEMIDE
     Indication: Hypertensive heart disease
     Dosage: 1 DOSAGE FORM, BID (1 TABLET)
     Route: 048
     Dates: start: 20241016, end: 20241018
  5. FUROSEMIDE [Concomitant]
     Active Substance: FUROSEMIDE
     Indication: Cardiac failure
  6. FUROSEMIDE [Concomitant]
     Active Substance: FUROSEMIDE
     Indication: Hypertension
  7. METOPROLOL SUCCINATE [Concomitant]
     Active Substance: METOPROLOL SUCCINATE
     Indication: Hypertension
     Dosage: 1 DOSAGE FORM, QD (1 TABLET) (SUSTAINED-RELEASE TABLETS)
     Route: 048
     Dates: start: 20241012, end: 20241019

REACTIONS (5)
  - Hypotension [Recovering/Resolving]
  - Central venous pressure increased [Unknown]
  - Septic shock [Unknown]
  - Brain natriuretic peptide increased [Unknown]
  - Heart rate increased [Unknown]

NARRATIVE: CASE EVENT DATE: 20241018
